FAERS Safety Report 6868003-5 (Version None)
Quarter: 2010Q3

REPORT INFORMATION
  Report Type: 
  Country: None (occurrence: None)
  Receive Date: 20100722
  Receipt Date: 20080509
  Transmission Date: 20110219
  Serious: No
  Sender: FDA-Public Use
  Company Number: US-PFIZER INC-2008041154

PATIENT
  Sex: Female
  Weight: 55 kg

DRUGS (2)
  1. CHANTIX [Suspect]
     Indication: SMOKING CESSATION THERAPY
     Dosage: 0.5 MG QD EVERY DAY TDD:0.5 MG
     Dates: start: 20080430
  2. HERBAL PREPARATION [Concomitant]

REACTIONS (3)
  - DRY MOUTH [None]
  - NAUSEA [None]
  - THIRST [None]
